FAERS Safety Report 6646059-2 (Version None)
Quarter: 2010Q1

REPORT INFORMATION
  Report Type: 
  Country: None (occurrence: None)
  Receive Date: 20100323
  Receipt Date: 20100311
  Transmission Date: 20100710
  Serious: Yes (Hospitalization)
  Sender: FDA-Public Use
  Company Number: DK-ELI_LILLY_AND_COMPANY-DK201002005363

PATIENT
  Sex: Female

DRUGS (10)
  1. PEMETREXED [Suspect]
     Indication: HEAD AND NECK CANCER
     Dosage: 500 MG, UNKNOWN
     Route: 065
     Dates: start: 20090514, end: 20090824
  2. CISPLATIN [Suspect]
     Indication: HEAD AND NECK CANCER
     Dosage: 75 MG/M2, OTHER
     Route: 065
     Dates: start: 20090514, end: 20090824
  3. FOLIC ACID [Concomitant]
     Indication: SUPPLEMENTATION THERAPY
     Dosage: 0.4 MG, DAILY (1/D)
     Route: 048
     Dates: start: 20090505, end: 20090928
  4. VITAMIN B-12 [Concomitant]
     Indication: SUPPLEMENTATION THERAPY
     Dosage: 1 MG, UNK
     Route: 030
     Dates: start: 20090505, end: 20090928
  5. DEXAMETHASONE [Concomitant]
     Indication: SUPPLEMENTATION THERAPY
     Dosage: 25 MG, UNK
     Route: 048
     Dates: start: 20090513, end: 20090928
  6. PARACETAMOL [Concomitant]
     Indication: PAIN
     Dates: start: 20090429
  7. IPREN [Concomitant]
     Indication: PAIN
     Dates: start: 20090429
  8. SODIUM CHLORIDE [Concomitant]
     Indication: BLOOD SODIUM DECREASED
     Dates: start: 20090502
  9. MOVICOL [Concomitant]
     Indication: CONSTIPATION
     Dates: start: 20090430
  10. MABLET [Concomitant]
     Indication: BLOOD MAGNESIUM DECREASED
     Dates: start: 20090514

REACTIONS (1)
  - HYPERCALCAEMIA [None]
